FAERS Safety Report 14032101 (Version 1)
Quarter: 2017Q4

REPORT INFORMATION
  Report Type: Spontaneous
  Country: CA (occurrence: CA)
  Receive Date: 20171002
  Receipt Date: 20171002
  Transmission Date: 20180321
  Serious: Yes (Other)
  Sender: FDA-Public Use
  Company Number: CA-PFIZER INC-2017417080

PATIENT
  Sex: Female

DRUGS (1)
  1. PRISTIQ EXTENDED-RELEASE [Suspect]
     Active Substance: DESVENLAFAXINE SUCCINATE
     Dosage: 50 MG, UNK
     Dates: start: 2010

REACTIONS (3)
  - Cataract [Unknown]
  - Intraocular pressure increased [Not Recovered/Not Resolved]
  - Angle closure glaucoma [Unknown]

NARRATIVE: CASE EVENT DATE: 2014
